FAERS Safety Report 24606611 (Version 2)
Quarter: 2024Q4

REPORT INFORMATION
  Report Type: Spontaneous
  Country: JP (occurrence: JP)
  Receive Date: 20241112
  Receipt Date: 20241126
  Transmission Date: 20250115
  Serious: Yes (Hospitalization)
  Sender: TEVA
  Company Number: JP-TEVA-VS-3261868

PATIENT
  Age: 47 Year
  Sex: Female

DRUGS (6)
  1. ALPRAZOLAM [Suspect]
     Active Substance: ALPRAZOLAM
     Indication: Depression
     Route: 048
  2. LEVOMEPROMAZINE [Suspect]
     Active Substance: LEVOMEPROMAZINE
     Indication: Depression
     Route: 048
  3. BROTIZOLAM [Suspect]
     Active Substance: BROTIZOLAM
     Indication: Depression
     Route: 048
  4. CHLORPROMAZINE [Suspect]
     Active Substance: CHLORPROMAZINE
     Indication: Depression
     Route: 048
  5. ESZOPICLONE [Suspect]
     Active Substance: ESZOPICLONE
     Indication: Depression
     Route: 048
  6. LITHIUM [Suspect]
     Active Substance: LITHIUM
     Indication: Depression
     Route: 048

REACTIONS (6)
  - Intentional overdose [Unknown]
  - Altered state of consciousness [Unknown]
  - Renal failure [Unknown]
  - Dehydration [Unknown]
  - Intentional product misuse [Unknown]
  - Hypotension [Unknown]
